FAERS Safety Report 9713930 (Version 1)
Quarter: 2013Q4

REPORT INFORMATION
  Report Type: Spontaneous
  Country: US (occurrence: US)
  Receive Date: 20131126
  Receipt Date: 20131126
  Transmission Date: 20140711
  Serious: No
  Sender: FDA-Public Use
  Company Number: US-GILEAD-2008-0018116

PATIENT
  Age: 62 Year
  Sex: Female

DRUGS (15)
  1. LETAIRIS [Suspect]
     Indication: PULMONARY ARTERIAL HYPERTENSION
     Route: 048
     Dates: start: 20080826
  2. FORTEO SOLUTION [Concomitant]
  3. ALBUTEROL [Concomitant]
  4. NORVASC [Concomitant]
     Route: 048
  5. ESTROPIPATE [Concomitant]
     Route: 048
  6. PRILOSEC [Concomitant]
     Route: 048
  7. NAPROXEN [Concomitant]
     Route: 048
  8. ZOLPIDEM [Concomitant]
     Route: 048
  9. RECLAST [Concomitant]
  10. CALCIUM [Concomitant]
     Route: 048
  11. MULTIVITAMIN [Concomitant]
     Route: 048
  12. ASPIRIN [Concomitant]
     Route: 048
  13. ACIPHEX [Concomitant]
     Route: 048
  14. ST. JOHN WORT [Concomitant]
     Route: 048
  15. VITAMIN E [Concomitant]
     Route: 048

REACTIONS (2)
  - Myalgia [None]
  - Dyspnoea [None]
